FAERS Safety Report 5066023-7 (Version None)
Quarter: 2006Q3

REPORT INFORMATION
  Report Type: 
  Country: None (occurrence: None)
  Receive Date: 20060726
  Receipt Date: 20060711
  Transmission Date: 20061208
  Serious: Yes (Other)
  Sender: FDA-Public Use
  Company Number: 2006S1006343

PATIENT
  Age: 14 Year
  Sex: Male

DRUGS (7)
  1. MERCAPTAMINE BITARTRATE [Suspect]
     Indication: CYSTINOSIS
     Dosage: 1200  MG; QD; PO
     Route: 048
     Dates: start: 20060311
  2. CYSTEAMINE (CON.) [Concomitant]
  3. ESOMEPRAZOLE (CON.) [Concomitant]
  4. PHOSPHATE (CON.) [Concomitant]
  5. ALFACALCIDOL (CON.) [Concomitant]
  6. CITRATE (CON.) [Concomitant]
  7. POTASSIUM CHLORIDE (CON.) [Concomitant]

REACTIONS (7)
  - ARTHRALGIA [None]
  - ARTHROPATHY [None]
  - CONTUSION [None]
  - HAEMOGLOBIN DECREASED [None]
  - INCREASED TENDENCY TO BRUISE [None]
  - PAIN [None]
  - SKIN DISCOLOURATION [None]
